FAERS Safety Report 5735542-X (Version None)
Quarter: 2008Q2

REPORT INFORMATION
  Report Type: 
  Country: None (occurrence: None)
  Receive Date: 20080508
  Receipt Date: 20070709
  Transmission Date: 20081010
  Serious: Yes (Disabling, Other)
  Sender: FDA-Public Use
  Company Number: 2007RR-08612

PATIENT
  Age: 50 Year
  Sex: Female
  Weight: 53 kg

DRUGS (5)
  1. GABAPENTIN [Suspect]
     Dosage: 100 MG, 3/WEEK,
     Dates: end: 20051011
  2. DICLOFENAC SODIUM TABLETS (DICLOFENAC) [Concomitant]
  3. PARACETAMOL (ACETAMINOPHEN/PARACETAMOL) [Concomitant]
  4. PROPANOLOL TABLETS BP (PROPANOL) [Concomitant]
  5. RANITIDINE TABLETS BP (RANITIDINE) [Concomitant]

REACTIONS (6)
  - CEREBRAL HAEMORRHAGE [None]
  - CEREBRAL ISCHAEMIA [None]
  - DISORIENTATION [None]
  - DYSPHASIA [None]
  - HALLUCINATION, VISUAL [None]
  - ILLUSION [None]
